FAERS Safety Report 20160688 (Version 1)
Quarter: 2021Q4

REPORT INFORMATION
  Report Type: Spontaneous
  Country: US (occurrence: None)
  Receive Date: 20211207
  Receipt Date: 20211207
  Transmission Date: 20220303
  Serious: Yes (Hospitalization)
  Sender: FDA-Public Use
  Company Number: None

PATIENT
  Age: 72 Year
  Sex: Female

DRUGS (9)
  1. DIMETHYL FUMARATE [Suspect]
     Active Substance: DIMETHYL FUMARATE
     Indication: Multiple sclerosis
     Dosage: FREQUENCY : TWICE A DAY;?
     Route: 048
     Dates: start: 20201014
  2. ATROVENT [Concomitant]
     Active Substance: IPRATROPIUM BROMIDE
  3. BACLOFEN [Concomitant]
     Active Substance: BACLOFEN
  4. CYCLOBENZAPRINE [Concomitant]
     Active Substance: CYCLOBENZAPRINE
  5. DANTROLENE [Concomitant]
     Active Substance: DANTROLENE
  6. FLUTICASONE [Concomitant]
     Active Substance: FLUTICASONE
  7. PYRIDOSTIGM [Concomitant]
  8. RANITIDINE [Concomitant]
     Active Substance: RANITIDINE
  9. ZETIA [Concomitant]
     Active Substance: EZETIMIBE

REACTIONS (2)
  - Hip fracture [None]
  - Fall [None]

NARRATIVE: CASE EVENT DATE: 20211107
